FAERS Safety Report 15231478 (Version 2)
Quarter: 2018Q3

REPORT INFORMATION
  Report Type: Spontaneous
  Country: AR (occurrence: AR)
  Receive Date: 20180802
  Receipt Date: 20180816
  Transmission Date: 20181010
  Serious: Yes (Hospitalization, Other)
  Sender: FDA-Public Use
  Company Number: PHHY2018AR057192

PATIENT
  Sex: Female

DRUGS (3)
  1. DIOVAN [Suspect]
     Active Substance: VALSARTAN
     Indication: BLOOD PRESSURE INCREASED
     Dosage: 80 MG, QD
     Route: 065
  2. DIOVAN [Suspect]
     Active Substance: VALSARTAN
     Dosage: 160 MG, QD
     Route: 065
  3. DIOVAN [Suspect]
     Active Substance: VALSARTAN
     Dosage: 80 MG, QD
     Route: 065

REACTIONS (11)
  - Asthenia [Unknown]
  - Cerebrovascular accident [Recovered/Resolved]
  - Anger [Unknown]
  - Hypertension [Unknown]
  - Drug ineffective [Unknown]
  - Memory impairment [Unknown]
  - Malaise [Unknown]
  - Osteoarthritis [Unknown]
  - Hypotension [Unknown]
  - Loss of consciousness [Recovered/Resolved]
  - Thrombosis [Unknown]

NARRATIVE: CASE EVENT DATE: 2007
